FAERS Safety Report 9682725 (Version 1)
Quarter: 2013Q4

REPORT INFORMATION
  Report Type: Spontaneous
  Country: US (occurrence: US)
  Receive Date: 20131025
  Receipt Date: 20131025
  Transmission Date: 20140711
  Serious: Yes (Hospitalization)
  Sender: FDA-Public Use
  Company Number: US-DRREDDYS-USA/USA/13/0035216

PATIENT
  Age: 44 Year
  Sex: Male

DRUGS (18)
  1. SEROQUEL [Suspect]
     Indication: AFFECTIVE DISORDER
     Dosage: 1-3 TABLETS EVERY EVENING
     Route: 065
  2. BOCEPREVIR [Interacting]
     Indication: HEPATITIS C
     Route: 065
  3. DOXAZOSIN [Interacting]
     Indication: PRODUCT USED FOR UNKNOWN INDICATION
     Dosage: 8 MG AT BEDTIME
     Route: 065
  4. TAMSULOSIN [Interacting]
     Indication: PRODUCT USED FOR UNKNOWN INDICATION
     Route: 065
  5. TESTOSTERONE CYPIONATE [Interacting]
     Indication: HYPOGONADISM
     Route: 030
  6. ONDANSETRON [Concomitant]
     Indication: NAUSEA
     Route: 065
  7. ONDANSETRON [Concomitant]
     Indication: VOMITING
     Route: 065
  8. EFAVIRENZ/EMTRICITABINE/TENOFOVIR DISOPROXIL [Concomitant]
     Indication: PRODUCT USED FOR UNKNOWN INDICATION
     Route: 048
  9. PEGINTERFERON ALFA 2B [Concomitant]
     Indication: HEPATITIS C
     Route: 058
  10. RIBAVIRIN [Concomitant]
     Indication: HEPATITIS C
     Dosage: 400 MG EVERY MORNING AND 600 MG EVERY EVENING
     Route: 065
  11. ESOMEPRAZOLE [Concomitant]
     Indication: PRODUCT USED FOR UNKNOWN INDICATION
     Route: 065
  12. LITHIUM [Concomitant]
     Indication: PRODUCT USED FOR UNKNOWN INDICATION
     Route: 065
  13. LOSARTAN [Concomitant]
     Indication: PRODUCT USED FOR UNKNOWN INDICATION
     Route: 065
  14. NAPROXEN [Concomitant]
     Indication: PAIN
     Route: 065
  15. ACETAMINOPHEN/OXYCODONE [Concomitant]
     Indication: PAIN
     Dosage: EVERY 6 HOURS AS NEEDED
     Route: 065
  16. LOPERAMIDE [Concomitant]
     Indication: DIARRHOEA
     Route: 065
  17. CODEINE/GUAFENESIN [Concomitant]
     Indication: COUGH
     Dosage: 10 ML FOUR TIMES DAILY AS NEEDED
     Route: 065
  18. CYCLOBENZAPRINE [Concomitant]
     Indication: MUSCLE SPASMS
     Route: 065

REACTIONS (2)
  - Drug interaction [Unknown]
  - Priapism [Recovering/Resolving]
